FAERS Safety Report 5748389-5 (Version None)
Quarter: 2008Q2

REPORT INFORMATION
  Report Type: 
  Country: None (occurrence: None)
  Receive Date: 20080523
  Receipt Date: 20080519
  Transmission Date: 20081010
  Serious: Yes (Hospitalization)
  Sender: FDA-Public Use
  Company Number: US-AMGEN-QUU278276

PATIENT
  Sex: Male

DRUGS (4)
  1. ENBREL [Suspect]
     Indication: PSORIASIS
     Route: 058
     Dates: start: 20050501
  2. ASPIRIN [Concomitant]
  3. LASIX [Concomitant]
  4. LYRICA [Concomitant]

REACTIONS (3)
  - INTERVERTEBRAL DISC OPERATION [None]
  - NECK INJURY [None]
  - SPINAL FUSION SURGERY [None]
